FAERS Safety Report 19664563 (Version 1)
Quarter: 2021Q3

REPORT INFORMATION
  Report Type: Spontaneous
  Country: US (occurrence: US)
  Receive Date: 20210806
  Receipt Date: 20210806
  Transmission Date: 20211014
  Serious: No
  Sender: FDA-Public Use
  Company Number: US-PURDUE PHARMA-USA-2021-0235714

PATIENT
  Sex: Female

DRUGS (1)
  1. BUPRENORPHINE TRANSDERMAL PATCH (SIMILAR TO NDA 21?306) [Suspect]
     Active Substance: BUPRENORPHINE
     Indication: PAIN
     Dosage: 10 MCG/HR, WEEKLY
     Route: 062
     Dates: start: 2015

REACTIONS (9)
  - Rash [Not Recovered/Not Resolved]
  - Product residue present [Not Recovered/Not Resolved]
  - Application site irritation [Not Recovered/Not Resolved]
  - Wrong technique in product usage process [Unknown]
  - Blister [Not Recovered/Not Resolved]
  - Pruritus [Not Recovered/Not Resolved]
  - Dry skin [Unknown]
  - Feeling abnormal [Unknown]
  - Application site vesicles [Unknown]

NARRATIVE: CASE EVENT DATE: 202010
